FAERS Safety Report 5374160-2 (Version None)
Quarter: 2007Q2

REPORT INFORMATION
  Report Type: 
  Country: None (occurrence: None)
  Receive Date: 20070627
  Receipt Date: 20070615
  Transmission Date: 20071010
  Serious: Yes (Hospitalization)
  Sender: FDA-Public Use
  Company Number: LTI2007A00136

PATIENT
  Age: 76 Year
  Sex: Female

DRUGS (5)
  1. ACTOS [Suspect]
     Indication: DIABETES MELLITUS NON-INSULIN-DEPENDENT
     Dosage: 15MG (15 MG, 1 IN 1 D); ORAL
     Route: 048
  2. PERINDOPRIL ERBUMINE [Concomitant]
  3. DETENSIE (BISOPROLOL) [Concomitant]
  4. FLECAINIDE ACETATE [Concomitant]
  5. STAGID (METFORMIN EMBONATE) [Concomitant]

REACTIONS (3)
  - CLUMSINESS [None]
  - FALL [None]
  - PATHOLOGICAL FRACTURE [None]
